FAERS Safety Report 20729999 (Version 1)
Quarter: 2022Q2

REPORT INFORMATION
  Report Type: Spontaneous
  Country: US (occurrence: US)
  Receive Date: 20220420
  Receipt Date: 20220420
  Transmission Date: 20220721
  Serious: No
  Sender: FDA-Public Use
  Company Number: US-BRISTOL-MYERS SQUIBB COMPANY-2022-012240

PATIENT
  Age: 45 Year
  Sex: Female

DRUGS (1)
  1. REVLIMID [Suspect]
     Active Substance: LENALIDOMIDE
     Indication: Plasma cell myeloma
     Route: 048
     Dates: start: 20220301

REACTIONS (7)
  - Myalgia [Unknown]
  - Fatigue [Unknown]
  - Constipation [Unknown]
  - Ageusia [Unknown]
  - Dysgeusia [Unknown]
  - Feeling jittery [Unknown]
  - Tremor [Unknown]
